FAERS Safety Report 7542375-0 (Version None)
Quarter: 2011Q2

REPORT INFORMATION
  Report Type: 
  Country: None (occurrence: None)
  Receive Date: 20110524
  Receipt Date: 20110420
  Transmission Date: 20111010
  Serious: No
  Sender: FDA-Public Use
  Company Number: 025932

PATIENT
  Sex: Male
  Weight: 86.2 kg

DRUGS (4)
  1. IMURAN [Concomitant]
  2. CIMZIA [Suspect]
     Indication: CROHN'S DISEASE
     Dosage: 400 MG 1X/MONTH SUBCUTANEOUS, 200 MG 1X/MONTH SUBCUTANEOUS
     Route: 058
     Dates: start: 20110101, end: 20110301
  3. CIMZIA [Suspect]
     Indication: CROHN'S DISEASE
     Dosage: 400 MG 1X/MONTH SUBCUTANEOUS, 200 MG 1X/MONTH SUBCUTANEOUS
     Route: 058
     Dates: start: 20110401
  4. LISINOPRIL [Concomitant]

REACTIONS (4)
  - LYMPHADENOPATHY [None]
  - BRONCHITIS [None]
  - INFLUENZA LIKE ILLNESS [None]
  - ANAL SPASM [None]
